FAERS Safety Report 22827914 (Version 6)
Quarter: 2024Q1

REPORT INFORMATION
  Report Type: Spontaneous
  Country: CA (occurrence: CA)
  Receive Date: 20230816
  Receipt Date: 20240131
  Transmission Date: 20240410
  Serious: Yes (Hospitalization, Other)
  Sender: FDA-Public Use
  Company Number: CA-PFIZER INC-202101127636

PATIENT
  Age: 35 Year
  Sex: Female
  Weight: 62.64 kg

DRUGS (10)
  1. RUXIENCE [Suspect]
     Active Substance: RITUXIMAB-PVVR
     Indication: Interstitial lung disease
     Dosage: 1 G, ON WEEK 0 AND WEEK 2. NOT YET STARTED.
     Route: 042
  2. RUXIENCE [Suspect]
     Active Substance: RITUXIMAB-PVVR
     Indication: Immunodeficiency common variable
     Dosage: 1000MG, WEEK 0 AND WEEK 2
     Route: 042
     Dates: start: 20211207, end: 20211222
  3. RUXIENCE [Suspect]
     Active Substance: RITUXIMAB-PVVR
     Dosage: 1000MG, WEEK 0 AND WEEK 2
     Route: 042
     Dates: start: 20211222
  4. RUXIENCE [Suspect]
     Active Substance: RITUXIMAB-PVVR
     Dosage: 1000 MG, DAY 1 AND DAY 15
     Route: 042
     Dates: start: 20220901, end: 20220915
  5. RUXIENCE [Suspect]
     Active Substance: RITUXIMAB-PVVR
     Dosage: 500MG WEEK 0 AND 2 AT 4:25 HOURS
     Route: 042
     Dates: start: 20230317, end: 20230330
  6. RUXIENCE [Suspect]
     Active Substance: RITUXIMAB-PVVR
     Dosage: 500MG DAY 1 AND DAY 15
     Route: 042
     Dates: start: 20230330
  7. BENADRYL [Concomitant]
     Active Substance: DIPHENHYDRAMINE HYDROCHLORIDE
     Dosage: 50 MG
     Route: 042
     Dates: start: 20211207, end: 20211207
  8. IMMUNGLOBULIN [Concomitant]
     Dosage: 55 G
  9. ALBUTEROL [Concomitant]
     Active Substance: ALBUTEROL
     Dosage: 2.5 MG
     Dates: start: 20211207, end: 20211207
  10. SYNTHROID [Concomitant]
     Active Substance: LEVOTHYROXINE SODIUM
     Dosage: 200 MG

REACTIONS (13)
  - Clostridium difficile infection [Unknown]
  - Hernia [Unknown]
  - Dyspnoea [Recovered/Resolved]
  - Chest discomfort [Recovered/Resolved]
  - Heart rate increased [Not Recovered/Not Resolved]
  - Sinusitis [Unknown]
  - Cough [Unknown]
  - Chest X-ray abnormal [Unknown]
  - Diarrhoea [Not Recovered/Not Resolved]
  - Abdominal pain [Not Recovered/Not Resolved]
  - Irritable bowel syndrome [Not Recovered/Not Resolved]
  - Dehydration [Unknown]
  - Off label use [Unknown]

NARRATIVE: CASE EVENT DATE: 20220815
